FAERS Safety Report 5950016-9 (Version None)
Quarter: 2008Q4

REPORT INFORMATION
  Report Type: 
  Country: None (occurrence: None)
  Receive Date: 20081111
  Receipt Date: 20080131
  Transmission Date: 20090506
  Serious: No
  Sender: FDA-Public Use
  Company Number: US-BRISTOL-MYERS SQUIBB COMPANY-14070940

PATIENT
  Age: 50 Year
  Sex: Male

DRUGS (3)
  1. EFAVIRENZ [Suspect]
     Route: 065
     Dates: start: 20000101, end: 20070801
  2. COMBIVIR [Suspect]
     Route: 065
     Dates: start: 20000101, end: 20070801
  3. GLUCOPHAGE [Concomitant]

REACTIONS (1)
  - VIRAL LOAD INCREASED [None]
